FAERS Safety Report 8450465-3 (Version None)
Quarter: 2012Q2

REPORT INFORMATION
  Report Type: 
  Country: None (occurrence: None)
  Receive Date: 20120620
  Receipt Date: 20120614
  Transmission Date: 20120825
  Serious: Yes (Death)
  Sender: FDA-Public Use
  Company Number: US-ASTELLAS-2012US005449

PATIENT
  Sex: Female
  Weight: 53 kg

DRUGS (4)
  1. MAGNESIUM [Concomitant]
     Indication: BLOOD MAGNESIUM DECREASED
     Dosage: 1000 MG, UID/QD
     Route: 048
     Dates: start: 19970113, end: 20120228
  2. PREDNISONE [Concomitant]
     Indication: RENAL TRANSPLANT
     Dosage: UNK
     Route: 048
     Dates: start: 19970113, end: 20120228
  3. PROGRAF [Suspect]
     Indication: RENAL TRANSPLANT
     Dosage: 2 MG IN AM, 1 MG IN PM DAILY
     Route: 048
     Dates: start: 19970113, end: 20120228
  4. CIPRO [Concomitant]
     Indication: INFECTION PROPHYLAXIS
     Dosage: UNK
     Route: 048
     Dates: start: 19970113, end: 20120228

REACTIONS (3)
  - SEPSIS [None]
  - MULTI-ORGAN FAILURE [None]
  - NECROTISING FASCIITIS [None]
